FAERS Safety Report 5592984-3 (Version None)
Quarter: 2008Q1

REPORT INFORMATION
  Report Type: 
  Country: None (occurrence: None)
  Receive Date: 20080114
  Receipt Date: 20080114
  Transmission Date: 20080703
  Serious: No
  Sender: FDA-Public Use
  Company Number: None

PATIENT
  Age: 41 Year
  Sex: Female
  Weight: 113 kg

DRUGS (2)
  1. VANCOMYCIN [Suspect]
     Dosage: 1600MG X1 IV
     Route: 042
     Dates: start: 20080111
  2. DEXTROSE [Suspect]

REACTIONS (5)
  - DRUG HYPERSENSITIVITY [None]
  - INFUSION SITE IRRITATION [None]
  - INFUSION SITE PRURITUS [None]
  - OEDEMA PERIPHERAL [None]
  - RASH MACULAR [None]
